FAERS Safety Report 14741807 (Version 2)
Quarter: 2018Q2

REPORT INFORMATION
  Report Type: Spontaneous
  Country: CA (occurrence: CA)
  Receive Date: 20180410
  Receipt Date: 20180525
  Transmission Date: 20180711
  Serious: Yes (Other)
  Sender: FDA-Public Use
  Company Number: CA-CELLTRION INC.-2017CA017676

PATIENT

DRUGS (6)
  1. INFLIXIMAB PFIZER (UNKNOWN) [Suspect]
     Active Substance: INFLIXIMAB
     Dosage: 600 MG
     Route: 042
     Dates: start: 20180516
  2. PREDNISONE. [Concomitant]
     Active Substance: PREDNISONE
     Dosage: 5MG ONCE DAILY
     Route: 048
     Dates: start: 20170314
  3. INFLIXIMAB PFIZER (UNKNOWN) [Suspect]
     Active Substance: INFLIXIMAB
     Dosage: 500 MG, EVERY 8 WEEKS
     Route: 042
     Dates: start: 20180223
  4. ARAVA [Concomitant]
     Active Substance: LEFLUNOMIDE
     Dosage: 20 MG
     Route: 048
     Dates: start: 201612
  5. INFLIXIMAB PFIZER (UNKNOWN) [Suspect]
     Active Substance: INFLIXIMAB
     Indication: PSORIATIC ARTHROPATHY
     Dosage: 500 MG/ THEN EVERY 8 WEEKS
     Route: 042
     Dates: start: 20170331
  6. ADVIL [Concomitant]
     Active Substance: IBUPROFEN
     Indication: PAIN
     Dosage: UNK

REACTIONS (3)
  - Drug effect incomplete [Not Recovered/Not Resolved]
  - Underdose [Unknown]
  - Product use issue [Unknown]

NARRATIVE: CASE EVENT DATE: 20171229
